FAERS Safety Report 7481258-1 (Version None)
Quarter: 2011Q2

REPORT INFORMATION
  Report Type: 
  Country: None (occurrence: None)
  Receive Date: 20110512
  Receipt Date: 20110512
  Transmission Date: 20111010
  Serious: Yes (Hospitalization)
  Sender: FDA-Public Use
  Company Number: None

PATIENT
  Sex: Female
  Weight: 86.4 kg

DRUGS (1)
  1. TOPAMAX [Suspect]
     Indication: CONVULSION
     Dosage: 100 MG 2X PER DAY
     Dates: start: 20071101

REACTIONS (17)
  - HEADACHE [None]
  - DIZZINESS [None]
  - CONTUSION [None]
  - MALAISE [None]
  - DRUG LEVEL DECREASED [None]
  - DIARRHOEA [None]
  - FALL [None]
  - NECK PAIN [None]
  - NECK INJURY [None]
  - VOMITING [None]
  - CONVULSION [None]
  - NAUSEA [None]
  - BACK INJURY [None]
  - ABDOMINAL PAIN UPPER [None]
  - PAIN [None]
  - ABDOMINAL PAIN LOWER [None]
  - PRODUCT QUALITY ISSUE [None]
